FAERS Safety Report 9183387 (Version 2)
Quarter: 2013Q2

REPORT INFORMATION
  Report Type: Report from Study
  Country: US (occurrence: US)
  Receive Date: 20130322
  Receipt Date: 20130403
  Transmission Date: 20140414
  Serious: No
  Sender: FDA-Public Use
  Company Number: US-VERTEX PHARMACEUTICALS INC.-2013-003816

PATIENT
  Age: 55 Year
  Sex: Male
  Weight: 89 kg

DRUGS (6)
  1. VX-950 (TELAPREVIR) [Suspect]
     Indication: HEPATITIS C
     Dosage: 750 MG, TID
     Route: 048
     Dates: start: 20130315
  2. RIBAVIRIN [Suspect]
     Indication: HEPATITIS C
     Dosage: 600 MG, BID
     Route: 048
     Dates: start: 20130115, end: 20130301
  3. RIBAVIRIN [Suspect]
     Dosage: 400 MG AM, 200 MG PM
     Route: 048
     Dates: start: 20130301
  4. PEGASYS [Suspect]
     Indication: HEPATITIS C
     Dosage: 180 ?G, WEEKLY
     Route: 058
     Dates: start: 20130115, end: 20130307
  5. PEGASYS [Suspect]
     Dosage: 135 ?G, QW
     Route: 058
     Dates: start: 20130307
  6. EFFEXOR [Concomitant]
     Indication: DEPRESSION

REACTIONS (4)
  - Decreased appetite [Not Recovered/Not Resolved]
  - Dry skin [Recovered/Resolved]
  - Injection site erythema [Not Recovered/Not Resolved]
  - Rash erythematous [Recovered/Resolved]
